FAERS Safety Report 22603896 (Version 1)
Quarter: 2023Q2

REPORT INFORMATION
  Report Type: Spontaneous
  Country: GB (occurrence: GB)
  Receive Date: 20230615
  Receipt Date: 20230615
  Transmission Date: 20230721
  Serious: Yes (Other)
  Sender: FDA-Public Use
  Company Number: GB-MHRA-MED-202306061817278700-QKSWV

PATIENT
  Age: 60 Year
  Sex: Female

DRUGS (3)
  1. MONTELUKAST SODIUM [Suspect]
     Active Substance: MONTELUKAST SODIUM
     Indication: Asthma
     Dosage: AT NIGHT
     Dates: start: 20230524, end: 20230602
  2. CITALOPRAM [Concomitant]
     Active Substance: CITALOPRAM HYDROBROMIDE
     Dosage: UNK
  3. DIAZEPAM [Concomitant]
     Active Substance: DIAZEPAM
     Dosage: UNK

REACTIONS (10)
  - Mental disorder [Recovered/Resolved with Sequelae]
  - Abnormal behaviour [Recovering/Resolving]
  - Thinking abnormal [Recovering/Resolving]
  - Aggression [Recovering/Resolving]
  - Intentional self-injury [Recovering/Resolving]
  - Emotional distress [Recovering/Resolving]
  - Apathy [Recovering/Resolving]
  - Suicidal ideation [Recovering/Resolving]
  - Panic attack [Recovering/Resolving]
  - Sleep disorder [Recovering/Resolving]

NARRATIVE: CASE EVENT DATE: 20230524
